FAERS Safety Report 19840259 (Version 3)
Quarter: 2021Q4

REPORT INFORMATION
  Report Type: Spontaneous
  Country: JP (occurrence: JP)
  Receive Date: 20210915
  Receipt Date: 20211228
  Transmission Date: 20220303
  Serious: Yes (Other)
  Sender: FDA-Public Use
  Company Number: JP-TEIJIN-202102529_FET_P_1

PATIENT
  Age: 71 Year
  Sex: Male

DRUGS (8)
  1. FEBUXOSTAT [Suspect]
     Active Substance: FEBUXOSTAT
     Indication: Hyperuricaemia
     Dosage: 20 MILLIGRAM, QD
     Route: 048
     Dates: start: 201905, end: 20210718
  2. BEZAFIBRATE [Suspect]
     Active Substance: BEZAFIBRATE
     Indication: Hyperlipidaemia
     Dosage: 200 MILLIGRAM, BID
     Route: 048
     Dates: end: 20210718
  3. EPERISONE HYDROCHLORIDE [Suspect]
     Active Substance: EPERISONE HYDROCHLORIDE
     Indication: Cervicobrachial syndrome
     Dosage: 50 MILLIGRAM, QD
     Route: 048
     Dates: end: 20210718
  4. RUPAFIN [Suspect]
     Active Substance: RUPATADINE FUMARATE
     Indication: Rhinitis allergic
     Dosage: 10 MILLIGRAM, QD
     Route: 048
     Dates: end: 20210718
  5. MONTELUKAST [Suspect]
     Active Substance: MONTELUKAST SODIUM
     Indication: Rhinitis allergic
     Dosage: 10 MILLIGRAM, QD
     Route: 048
     Dates: end: 20210718
  6. HERBALS [Suspect]
     Active Substance: HERBALS
     Indication: Productive cough
     Dosage: 3 GRAM, BID
     Route: 048
     Dates: end: 20210718
  7. HERBALS [Suspect]
     Active Substance: HERBALS
     Dosage: 3 GRAM, BID
     Route: 048
  8. AMLODIPINE\TELMISARTAN [Concomitant]
     Active Substance: AMLODIPINE\TELMISARTAN
     Indication: Hypertension
     Dosage: 1 DOSAGE FORM, QD
     Route: 048

REACTIONS (1)
  - Duodenal ulcer [Recovered/Resolved]

NARRATIVE: CASE EVENT DATE: 20210705
